FAERS Safety Report 9561080 (Version 2)
Quarter: 2013Q4

REPORT INFORMATION
  Report Type: Spontaneous
  Country: US (occurrence: US)
  Receive Date: 20130927
  Receipt Date: 20131115
  Transmission Date: 20140711
  Serious: No
  Sender: FDA-Public Use
  Company Number: US-BIOGENIDEC-2013BI056563

PATIENT
  Age: 36 Year
  Sex: Male

DRUGS (4)
  1. TECFIDERA [Suspect]
     Indication: MULTIPLE SCLEROSIS
     Route: 048
     Dates: start: 20130626
  2. NUVIGIL [Concomitant]
  3. VITAMIN B-12 [Concomitant]
  4. VITAMIN D [Concomitant]

REACTIONS (3)
  - Flushing [Unknown]
  - Diarrhoea [Recovered/Resolved]
  - Nausea [Unknown]
